FAERS Safety Report 4818320-5 (Version None)
Quarter: 2005Q4

REPORT INFORMATION
  Report Type: 
  Country: None (occurrence: None)
  Receive Date: 20051102
  Receipt Date: 20050414
  Transmission Date: 20060501
  Serious: Yes (Hospitalization, Other)
  Sender: FDA-Public Use
  Company Number: PHEH2005US04994

PATIENT
  Sex: Male

DRUGS (1)
  1. TRILEPTAL [Suspect]

REACTIONS (6)
  - CHOKING [None]
  - CONVULSION [None]
  - PNEUMONIA ASPIRATION [None]
  - PYREXIA [None]
  - VIRAL INFECTION [None]
  - VOMITING [None]
